FAERS Safety Report 5630328-9 (Version None)
Quarter: 2008Q1

REPORT INFORMATION
  Report Type: 
  Country: None (occurrence: None)
  Receive Date: 20080219
  Receipt Date: 20080207
  Transmission Date: 20080703
  Serious: Yes (Other)
  Sender: FDA-Public Use
  Company Number: FR-BRISTOL-MYERS SQUIBB COMPANY-14030712

PATIENT
  Age: 40 Year
  Sex: Female
  Weight: 50 kg

DRUGS (8)
  1. ORENCIA [Suspect]
     Indication: RHEUMATOID ARTHRITIS
     Dates: start: 20051001
  2. KETOPROFEN [Suspect]
     Dosage: STARTED BEFORE AUG-2007.
     Dates: end: 20071207
  3. NOVATREX [Concomitant]
  4. CORTANCYL [Concomitant]
     Dosage: INCREASED TO 25MG/DAY ON 10DEC2007
  5. REMICADE [Concomitant]
     Dates: start: 20070201, end: 20071001
  6. PROZAC [Concomitant]
     Indication: DEPRESSION
     Dosage: 1 DOSAGE FORM = 1 TAB
  7. OGAST [Concomitant]
     Indication: GASTRITIS PROPHYLAXIS
     Dosage: 1 DOSAGE FORM = 1 TAB
  8. XANAX [Concomitant]
     Indication: ANXIETY
     Dosage: XANAX 0.25; 1 DOSAGE FORM = 1 TAB.

REACTIONS (2)
  - GLOMERULONEPHRITIS [None]
  - PROTEINURIA [None]
